FAERS Safety Report 24094504 (Version 1)
Quarter: 2024Q3

REPORT INFORMATION
  Report Type: Report from Study
  Country: CO (occurrence: CO)
  Receive Date: 20240716
  Receipt Date: 20240716
  Transmission Date: 20241016
  Serious: Yes (Other)
  Sender: JOHNSON AND JOHNSON
  Company Number: CO-JNJFOC-20240733827

PATIENT
  Age: 65 Year
  Sex: Female
  Weight: 54 kg

DRUGS (1)
  1. DARZALEX [Suspect]
     Active Substance: DARATUMUMAB
     Indication: Plasma cell myeloma
     Route: 041
     Dates: start: 20230907, end: 20240604

REACTIONS (1)
  - Transplant [Unknown]
